FAERS Safety Report 9103958 (Version 2)
Quarter: 2013Q1

REPORT INFORMATION
  Report Type: Report from Study
  Country: CA (occurrence: CA)
  Receive Date: 20130219
  Receipt Date: 20130328
  Transmission Date: 20140127
  Serious: Yes (Other)
  Sender: FDA-Public Use
  Company Number: CA-JNJFOC-20130205666

PATIENT
  Age: 48 Year
  Sex: Female

DRUGS (1)
  1. REMICADE [Suspect]
     Indication: CROHN^S DISEASE
     Route: 042

REACTIONS (7)
  - Arthritis [Unknown]
  - Fungal infection [Unknown]
  - Lower respiratory tract infection [Unknown]
  - Headache [Unknown]
  - Pyrexia [Unknown]
  - Temporal arteritis [Unknown]
  - Tongue ulceration [Unknown]
